FAERS Safety Report 17753961 (Version 1)
Quarter: 2020Q2

REPORT INFORMATION
  Report Type: Spontaneous
  Country: US (occurrence: US)
  Receive Date: 20200506
  Receipt Date: 20200506
  Transmission Date: 20200714
  Serious: No
  Sender: FDA-Public Use
  Company Number: US-ROCHE-2483595

PATIENT
  Sex: Female
  Weight: 77.18 kg

DRUGS (1)
  1. ESBRIET [Suspect]
     Active Substance: PIRFENIDONE
     Indication: IDIOPATHIC PULMONARY FIBROSIS
     Dosage: TAKES 3 TAB BY MOUTH 3 TIMES IN DAY
     Route: 048
     Dates: start: 20190827

REACTIONS (4)
  - Abdominal discomfort [Not Recovered/Not Resolved]
  - Gastric disorder [Unknown]
  - Nausea [Unknown]
  - Contusion [Unknown]
